FAERS Safety Report 6015300-1 (Version None)
Quarter: 2008Q4

REPORT INFORMATION
  Report Type: 
  Country: None (occurrence: None)
  Receive Date: 20081222
  Receipt Date: 20081125
  Transmission Date: 20090506
  Serious: Yes (Life-Threatening, Hospitalization)
  Sender: FDA-Public Use
  Company Number: US-BAYER-200814386BCC

PATIENT
  Age: 55 Year
  Sex: Female
  Weight: 59 kg

DRUGS (2)
  1. ALKA SELTZER PLUS COLD ORIGINAL [Suspect]
     Indication: NASOPHARYNGITIS
  2. ALKA SELTZER PLUS COLD ORIGINAL [Suspect]
     Dates: start: 20081103

REACTIONS (10)
  - AMNESIA [None]
  - APHASIA [None]
  - BLINDNESS UNILATERAL [None]
  - BRAIN OEDEMA [None]
  - DYSARTHRIA [None]
  - HAEMORRHAGIC STROKE [None]
  - HEADACHE [None]
  - MENTAL STATUS CHANGES [None]
  - MOTOR DYSFUNCTION [None]
  - VOMITING [None]
